FAERS Safety Report 23774233 (Version 2)
Quarter: 2024Q2

REPORT INFORMATION
  Report Type: Report from Study
  Country: US (occurrence: US)
  Receive Date: 20240423
  Receipt Date: 20240629
  Transmission Date: 20240715
  Serious: Yes (Other)
  Sender: FDA-Public Use
  Company Number: US-JNJFOC-20240444505

PATIENT
  Age: 46 Year
  Sex: Female
  Weight: 68.1 kg

DRUGS (8)
  1. SPRAVATO [Suspect]
     Active Substance: ESKETAMINE
     Indication: Depression
     Dosage: 56 MG, 1 DOSE
     Dates: start: 20231219, end: 20231219
  2. SPRAVATO [Suspect]
     Active Substance: ESKETAMINE
     Dosage: 84 MG, 12 DOSES
     Dates: start: 20231221, end: 20240214
  3. TRAZODONE [Concomitant]
     Active Substance: TRAZODONE HYDROCHLORIDE
     Indication: Insomnia
     Dosage: DAILY
     Route: 048
     Dates: start: 202310
  4. LOREEV XR [Concomitant]
     Active Substance: LORAZEPAM
     Indication: Anxiety
     Dosage: DAILY
     Route: 048
     Dates: start: 202305
  5. DISULFIRAM [Concomitant]
     Active Substance: DISULFIRAM
     Indication: Alcohol use disorder
     Dosage: DAILY, THERAPY START DATE REPORTED AS 6/3
     Route: 048
  6. DESVENLAFAXINE [Concomitant]
     Active Substance: DESVENLAFAXINE
     Indication: Depression
     Dosage: DAILY
     Route: 048
     Dates: start: 202305
  7. OLANZAPINE [Concomitant]
     Active Substance: OLANZAPINE
     Indication: Depression
     Dosage: DAILY
     Route: 048
     Dates: start: 202308
  8. AUVELITY [Concomitant]
     Active Substance: BUPROPION HYDROCHLORIDE\DEXTROMETHORPHAN HYDROBROMIDE
     Indication: Depression
     Dosage: 45/105 MG DAILY PO, THERAPY START DATE REPORTED AS 10/24
     Route: 048

REACTIONS (4)
  - Alcoholism [Unknown]
  - Dysarthria [Unknown]
  - Somnolence [Unknown]
  - Psychomotor skills impaired [Unknown]

NARRATIVE: CASE EVENT DATE: 20240214
